FAERS Safety Report 18525493 (Version 2)
Quarter: 2021Q4

REPORT INFORMATION
  Report Type: Spontaneous
  Country: US (occurrence: US)
  Receive Date: 20201120
  Receipt Date: 20211203
  Transmission Date: 20220303
  Serious: No
  Sender: FDA-Public Use
  Company Number: US-ALLERGAN-2038689US

PATIENT
  Age: 41 Year
  Sex: Female
  Weight: 69 kg

DRUGS (18)
  1. TEFLARO [Suspect]
     Active Substance: CEFTAROLINE FOSAMIL
     Indication: Staphylococcal infection
     Dosage: 600 MG, Q8HR
     Route: 042
     Dates: start: 20200821, end: 20200911
  2. TEFLARO [Suspect]
     Active Substance: CEFTAROLINE FOSAMIL
     Indication: Bacteraemia
  3. LOVENOX [Concomitant]
     Active Substance: ENOXAPARIN SODIUM
     Indication: Thrombosis prophylaxis
     Dosage: UNK, QD
     Route: 058
     Dates: start: 20200817
  4. COLACE [Concomitant]
     Active Substance: DOCUSATE SODIUM
     Indication: Constipation
     Dosage: UNK DF, BID
     Route: 048
     Dates: start: 20200817
  5. MORPHINE [Concomitant]
     Active Substance: MORPHINE
     Indication: Pain
     Dosage: UNK, PRN
     Route: 042
     Dates: start: 20200817
  6. ACETAMINOPHEN\OXYCODONE HYDROCHLORIDE\OXYCODONE TEREPHTHALATE [Concomitant]
     Active Substance: ACETAMINOPHEN\OXYCODONE HYDROCHLORIDE\OXYCODONE TEREPHTHALATE
     Indication: Pain
     Dosage: UNK, PRN
     Route: 048
     Dates: start: 20200817
  7. CUBICIN [Concomitant]
     Active Substance: DAPTOMYCIN
  8. ACETAMINOPHEN [Concomitant]
     Active Substance: ACETAMINOPHEN
  9. XANAX [Concomitant]
     Active Substance: ALPRAZOLAM
  10. DIAZEPAM [Concomitant]
     Active Substance: DIAZEPAM
  11. GABAPENTIN [Concomitant]
     Active Substance: GABAPENTIN
  12. IBUPROFEN [Concomitant]
     Active Substance: IBUPROFEN
  13. ONDANSETRON [Concomitant]
     Active Substance: ONDANSETRON
  14. OXYCODONE [Concomitant]
     Active Substance: OXYCODONE
  15. ZOLPIDEM [Concomitant]
     Active Substance: ZOLPIDEM TARTRATE
  16. FENTANYL [Concomitant]
     Active Substance: FENTANYL
  17. DILAUDID [Concomitant]
     Active Substance: HYDROMORPHONE HYDROCHLORIDE
  18. PHENYLEPHRINE [Concomitant]
     Active Substance: PHENYLEPHRINE HYDROCHLORIDE

REACTIONS (2)
  - Off label use [Unknown]
  - Neutropenia [Recovered/Resolved]

NARRATIVE: CASE EVENT DATE: 20200910
